FAERS Safety Report 9997652 (Version 1)
Quarter: 2014Q1

REPORT INFORMATION
  Report Type: Spontaneous
  Country: US (occurrence: US)
  Receive Date: 20140311
  Receipt Date: 20140311
  Transmission Date: 20141002
  Serious: No
  Sender: FDA-Public Use
  Company Number: US-PFIZER INC-2014068317

PATIENT
  Sex: Female

DRUGS (2)
  1. NARDIL [Suspect]
     Dosage: UNK
  2. TYLENOL [Concomitant]
     Dosage: UNK, AS NEEDED

REACTIONS (1)
  - Tyramine reaction [Unknown]
